FAERS Safety Report 6713943-0 (Version None)
Quarter: 2010Q2

REPORT INFORMATION
  Report Type: 
  Country: None (occurrence: None)
  Receive Date: 20100506
  Receipt Date: 20100504
  Transmission Date: 20101027
  Serious: Yes (Hospitalization)
  Sender: FDA-Public Use
  Company Number: DE-BRISTOL-MYERS SQUIBB COMPANY-15014434

PATIENT
  Age: 45 Year
  Sex: Female
  Weight: 101 kg

DRUGS (1)
  1. ABILIFY [Suspect]
     Indication: SCHIZOAFFECTIVE DISORDER
     Dosage: REDUCED TO 20MG/D OCT2009:10MG/D MAR10:5MG/D
     Route: 048
     Dates: start: 20060101

REACTIONS (1)
  - FIBROMYALGIA [None]
